FAERS Safety Report 10171458 (Version 1)
Quarter: 2014Q2

REPORT INFORMATION
  Report Type: Spontaneous
  Country: CH (occurrence: CH)
  Receive Date: 20140514
  Receipt Date: 20140514
  Transmission Date: 20141212
  Serious: Yes (Hospitalization, Other)
  Sender: FDA-Public Use
  Company Number: CH-PFIZER INC-2014125964

PATIENT
  Age: 55 Year
  Sex: Male
  Weight: 94.5 kg

DRUGS (12)
  1. LYRICA [Suspect]
     Dosage: 75 MG, 3X/DAY
     Dates: end: 20140221
  2. SEROQUEL [Suspect]
     Dosage: 300 MG, 1X/DAY
     Route: 048
     Dates: end: 20140221
  3. SEROQUEL XR [Suspect]
     Dosage: 200 MG, 1X/DAY
     Route: 048
     Dates: end: 20140221
  4. DALMADORM [Suspect]
     Dosage: 30 MG, 1X/DAY
     Route: 048
     Dates: end: 20140221
  5. SAROTEN [Suspect]
     Dosage: 50 MG, 1X/DAY
     Route: 048
     Dates: end: 20140221
  6. DAFALGAN [Concomitant]
     Dosage: 1 G, 2X/DAY
     Route: 048
  7. DAFALGAN [Concomitant]
     Dosage: 1 G, 3X/DAY
     Route: 048
  8. NEXIUM [Concomitant]
     Dosage: 40 MG, 1X/DAY
     Route: 048
  9. DEPAKINE CHRONO [Concomitant]
     Dosage: 300 MG, 2X/DAY
     Route: 048
  10. DIPIPERON [Concomitant]
     Dosage: 40 MG, 1X/DAY
     Route: 048
     Dates: end: 20140221
  11. ZALDIAR [Concomitant]
     Dosage: 1 DF (325 MG/37.5 MG), 1X/DAY
     Route: 048
     Dates: end: 20140221
  12. SIRDALUD [Concomitant]
     Dosage: 4 MG, 1X/DAY
     Route: 048

REACTIONS (13)
  - Drug abuse [Recovered/Resolved]
  - Confusional state [Recovered/Resolved]
  - Somnolence [Recovered/Resolved]
  - Toxicity to various agents [Unknown]
  - Carotid artery aneurysm [Unknown]
  - Disorientation [Unknown]
  - Dysarthria [Unknown]
  - Speech disorder [Unknown]
  - Hyporeflexia [Unknown]
  - Hypoaesthesia [Unknown]
  - Atrioventricular block first degree [Unknown]
  - Electrocardiogram repolarisation abnormality [Unknown]
  - Electroencephalogram abnormal [Unknown]
